FAERS Safety Report 18968372 (Version 1)
Quarter: 2021Q1

REPORT INFORMATION
  Report Type: Spontaneous
  Country: HR (occurrence: HR)
  Receive Date: 20210304
  Receipt Date: 20210304
  Transmission Date: 20210420
  Serious: Yes (Death, Life-Threatening, Other)
  Sender: FDA-Public Use
  Company Number: HR-B.I. PHARMACEUTICALS,INC./RIDGEFIELD-2021-BI-086809

PATIENT
  Age: 66 Year
  Sex: Male

DRUGS (2)
  1. VARGATEF [Suspect]
     Active Substance: NINTEDANIB
     Indication: ADENOCARCINOMA
     Dates: start: 202004
  2. DOCETAXEL. [Concomitant]
     Active Substance: DOCETAXEL
     Indication: PRODUCT USED FOR UNKNOWN INDICATION
     Dates: start: 202004

REACTIONS (16)
  - Cachexia [Unknown]
  - Pleural effusion [Unknown]
  - Dysgeusia [Unknown]
  - Pain [Unknown]
  - Decreased appetite [Unknown]
  - Movement disorder [Unknown]
  - Dyspnoea [Unknown]
  - Asthenia [Unknown]
  - Death [Fatal]
  - General physical health deterioration [Unknown]
  - Feeling hot [Unknown]
  - Liver disorder [Unknown]
  - Cough [Unknown]
  - Disease progression [Unknown]
  - Parosmia [Unknown]
  - Eastern Cooperative Oncology Group performance status [Unknown]

NARRATIVE: CASE EVENT DATE: 202011
